FAERS Safety Report 6247905-7 (Version None)
Quarter: 2009Q2

REPORT INFORMATION
  Report Type: 
  Country: None (occurrence: None)
  Receive Date: 20090626
  Receipt Date: 20090615
  Transmission Date: 20091009
  Serious: Yes (Hospitalization)
  Sender: FDA-Public Use
  Company Number: US-MYLANLABS-2009S1010591

PATIENT
  Age: 32 Year
  Sex: Male

DRUGS (6)
  1. VERAPAMIL [Suspect]
     Indication: OVERDOSE
  2. BUPROPION [Suspect]
     Indication: OVERDOSE
  3. ZOLPIDEM TARTRATE [Suspect]
     Indication: OVERDOSE
  4. QUETIAPINE [Suspect]
     Indication: OVERDOSE
  5. CLONAZEPAM [Suspect]
     Indication: OVERDOSE
  6. BENAZEPRIL HYDROCHLORIDE [Suspect]
     Indication: OVERDOSE

REACTIONS (2)
  - OVERDOSE [None]
  - SHOCK [None]
